FAERS Safety Report 4547387-7 (Version None)
Quarter: 2005Q1

REPORT INFORMATION
  Report Type: 
  Country: None (occurrence: None)
  Receive Date: 20041227
  Receipt Date: 20040929
  Transmission Date: 20050727
  Serious: No
  Sender: FDA-Public Use
  Company Number: 04P-163-0275290-00

PATIENT
  Age: 43 Year
  Sex: Female
  Weight: 52.6173 kg

DRUGS (4)
  1. HUMIRA [Suspect]
     Indication: CROHN'S DISEASE
     Dosage: 160 MG, 1 IN 2 WK, SUBCUTANEOUS
     Route: 058
     Dates: start: 20040916
  2. METHOTREXATE [Concomitant]
  3. FOLIC ACID [Concomitant]
  4. CYANOCOBALAMIN [Concomitant]

REACTIONS (1)
  - METRORRHAGIA [None]
